FAERS Safety Report 5350321-3 (Version None)
Quarter: 2007Q2

REPORT INFORMATION
  Report Type: 
  Country: None (occurrence: None)
  Receive Date: 20070516
  Receipt Date: 20061214
  Transmission Date: 20071010
  Serious: Yes (Other)
  Sender: FDA-Public Use
  Company Number: 2006153811

PATIENT
  Age: 27 Year
  Sex: Female
  Weight: 65.3 kg

DRUGS (2)
  1. DEPO-PROVERA [Suspect]
     Indication: CONTRACEPTION
     Dosage: (FIRST INJECTION)  : (MOST RECENT INJECTION)
     Dates: start: 20061115, end: 20061115
  2. DEPO-PROVERA [Suspect]
     Indication: CONTRACEPTION
     Dosage: (FIRST INJECTION)  : (MOST RECENT INJECTION)

REACTIONS (2)
  - ANAEMIA [None]
  - MENORRHAGIA [None]
